FAERS Safety Report 11766863 (Version 2)
Quarter: 2015Q4

REPORT INFORMATION
  Report Type: Report from Study
  Country: US (occurrence: US)
  Receive Date: 20151123
  Receipt Date: 20151209
  Transmission Date: 20160304
  Serious: No
  Sender: FDA-Public Use
  Company Number: US-AMGEN-USASL2015120079

PATIENT
  Age: 74 Year
  Sex: Female

DRUGS (1)
  1. ENBREL [Suspect]
     Active Substance: ETANERCEPT
     Indication: RHEUMATOID ARTHRITIS
     Dosage: 50 MG, QWK
     Route: 065
     Dates: start: 20141120

REACTIONS (3)
  - Gingivitis [Recovered/Resolved]
  - Ear swelling [Recovered/Resolved]
  - Tooth extraction [Recovered/Resolved]

NARRATIVE: CASE EVENT DATE: 2015
